FAERS Safety Report 7877798-3 (Version None)
Quarter: 2011Q4

REPORT INFORMATION
  Report Type: 
  Country: None (occurrence: None)
  Receive Date: 20111031
  Receipt Date: 20111031
  Transmission Date: 20120403
  Serious: Yes (Other)
  Sender: FDA-Public Use
  Company Number: None

PATIENT
  Age: 49 Year
  Sex: Female

DRUGS (1)
  1. AVONEX [Suspect]
     Indication: MULTIPLE SCLEROSIS
     Dosage: 30 MCG
     Route: 030
     Dates: start: 20090705, end: 20100315

REACTIONS (5)
  - WEIGHT INCREASED [None]
  - HEPATIC FUNCTION ABNORMAL [None]
  - FLUID RETENTION [None]
  - THIRST [None]
  - BREAST CANCER [None]
